FAERS Safety Report 16562713 (Version 10)
Quarter: 2021Q4

REPORT INFORMATION
  Report Type: Spontaneous
  Country: BR (occurrence: BR)
  Receive Date: 20190711
  Receipt Date: 20211130
  Transmission Date: 20220303
  Serious: Yes (Hospitalization, Other)
  Sender: FDA-Public Use
  Company Number: BR-GLAXOSMITHKLINE-BR2018GSK214824

PATIENT
  Age: 65 Year
  Sex: Female
  Weight: 51 kg

DRUGS (3)
  1. NUCALA [Suspect]
     Active Substance: MEPOLIZUMAB
     Indication: Asthma
     Dosage: 100 MG, Z, EVERY 4 WEEKS
     Dates: start: 20181121
  2. FLUTICASONE FUROATE [Suspect]
     Active Substance: FLUTICASONE FUROATE
     Indication: Product used for unknown indication
     Dosage: UNK
  3. BECLOMETHASONE\FORMOTEROL [Concomitant]
     Active Substance: BECLOMETHASONE\FORMOTEROL
     Indication: Asthma
     Dosage: UNK, BID

REACTIONS (16)
  - Asthmatic crisis [Recovered/Resolved]
  - Sinusitis [Recovered/Resolved]
  - Injection site pain [Recovered/Resolved]
  - Secretion discharge [Recovered/Resolved]
  - Cough [Recovered/Resolved]
  - Throat clearing [Recovered/Resolved]
  - Asthma [Recovered/Resolved]
  - Productive cough [Recovered/Resolved]
  - Hypersensitivity [Recovered/Resolved]
  - Nasal congestion [Recovered/Resolved]
  - Breath sounds abnormal [Recovered/Resolved]
  - Dysphonia [Recovered/Resolved]
  - Dyspnoea [Recovered/Resolved]
  - Therapy interrupted [Recovered/Resolved]
  - Product dose omission issue [Recovered/Resolved]
  - Inappropriate schedule of product administration [Recovered/Resolved]

NARRATIVE: CASE EVENT DATE: 20191025
